FAERS Safety Report 11692699 (Version 2)
Quarter: 2017Q4

REPORT INFORMATION
  Report Type: Spontaneous
  Country: US (occurrence: US)
  Receive Date: 20151103
  Receipt Date: 20171003
  Transmission Date: 20180320
  Serious: Yes (Hospitalization, Other)
  Sender: FDA-Public Use
  Company Number: US-SUN PHARMACEUTICAL INDUSTRIES LTD-2015US-105353

PATIENT
  Age: 41 Year
  Sex: Male

DRUGS (1)
  1. PHENYTOIN. [Suspect]
     Active Substance: PHENYTOIN
     Indication: SEIZURE
     Dosage: LOADING DOSE OF 1000 MG
     Route: 048

REACTIONS (3)
  - Generalised tonic-clonic seizure [Recovered/Resolved]
  - Drug level above therapeutic [Recovered/Resolved]
  - Dizziness [Recovered/Resolved]
